FAERS Safety Report 4776433-0 (Version None)
Quarter: 2005Q3

REPORT INFORMATION
  Report Type: 
  Country: None (occurrence: None)
  Receive Date: 20050915
  Receipt Date: 20050906
  Transmission Date: 20060218
  Serious: No
  Sender: FDA-Public Use
  Company Number: 05H-087-0302382-00

PATIENT
  Age: 69 Year
  Sex: Male

DRUGS (1)
  1. METRONIDAZOLE [Suspect]
     Indication: AMOEBIC DYSENTERY
     Dosage: 150 MG, PER DAY, NOT REPORTED
     Dates: start: 20031001, end: 20031222

REACTIONS (15)
  - ATROPHY [None]
  - BRAIN STEM SYNDROME [None]
  - CARDIOVASCULAR DISORDER [None]
  - COORDINATION ABNORMAL [None]
  - DIFFICULTY IN WALKING [None]
  - DYSARTHRIA [None]
  - DYSPHAGIA [None]
  - HYPERREFLEXIA [None]
  - MUSCLE SPASMS [None]
  - NERVE CONDUCTION STUDIES ABNORMAL [None]
  - NERVOUS SYSTEM DISORDER [None]
  - NEUROPATHY PERIPHERAL [None]
  - NUCLEAR MAGNETIC RESONANCE IMAGING BRAIN ABNORMAL [None]
  - PARAESTHESIA [None]
  - SENSORY LOSS [None]
